FAERS Safety Report 11996287 (Version 1)
Quarter: 2016Q1

REPORT INFORMATION
  Report Type: Report from Study
  Country: US (occurrence: US)
  Receive Date: 20160203
  Receipt Date: 20160203
  Transmission Date: 20160526
  Serious: Yes (Hospitalization)
  Sender: FDA-Public Use
  Company Number: US-JACOBUS PHARMACEUTICAL COMPANY, INC.-1047274

PATIENT
  Age: 63 Year
  Sex: Female
  Weight: 80 kg

DRUGS (20)
  1. TACROLIMUS. [Suspect]
     Active Substance: TACROLIMUS
     Route: 048
     Dates: start: 20130925, end: 20130925
  2. BASILIXIMAB [Suspect]
     Active Substance: BASILIXIMAB
     Route: 042
     Dates: start: 20130825, end: 20130829
  3. MYCOPHENOLATE MOFETIL. [Suspect]
     Active Substance: MYCOPHENOLATE MOFETIL
     Route: 048
     Dates: start: 20130825, end: 20130825
  4. TACROLIMUS. [Suspect]
     Active Substance: TACROLIMUS
     Route: 048
     Dates: start: 20130927, end: 20130927
  5. TACROLIMUS. [Suspect]
     Active Substance: TACROLIMUS
     Route: 048
     Dates: start: 20130928, end: 20130928
  6. DAPSONE. [Suspect]
     Active Substance: DAPSONE
     Indication: PROPHYLAXIS
     Route: 048
     Dates: start: 20130828, end: 20130923
  7. TACROLIMUS. [Suspect]
     Active Substance: TACROLIMUS
     Route: 048
     Dates: start: 20131001
  8. DAPSONE. [Suspect]
     Active Substance: DAPSONE
     Route: 048
     Dates: start: 20130926, end: 20130928
  9. ZETIA [Concomitant]
     Active Substance: EZETIMIBE
  10. MYCOSTATIN [Concomitant]
     Active Substance: NYSTATIN
     Route: 048
  11. SENOKOT [Concomitant]
     Active Substance: SENNOSIDES
  12. TACROLIMUS. [Suspect]
     Active Substance: TACROLIMUS
     Route: 048
     Dates: start: 20130827, end: 20130923
  13. ASKP1240 [Suspect]
     Active Substance: BLESELUMAB
     Route: 042
     Dates: start: 20130825
  14. TACROLIMUS. [Suspect]
     Active Substance: TACROLIMUS
     Route: 048
     Dates: start: 20130929, end: 20131001
  15. TACROLIMUS. [Suspect]
     Active Substance: TACROLIMUS
     Route: 048
     Dates: start: 2013
  16. INSULIN ASPART [Concomitant]
     Active Substance: INSULIN ASPART
  17. ECOTRIN [Concomitant]
     Active Substance: ASPIRIN
  18. VALCYTE [Concomitant]
     Active Substance: VALGANCICLOVIR HYDROCHLORIDE
     Route: 067
     Dates: start: 20130828
  19. PEPCID [Concomitant]
     Active Substance: FAMOTIDINE
  20. NPH INSULIN [Concomitant]
     Active Substance: INSULIN BEEF

REACTIONS (10)
  - Dyspnoea [Recovered/Resolved with Sequelae]
  - Dehydration [None]
  - Malnutrition [None]
  - Methaemoglobinaemia [Recovered/Resolved with Sequelae]
  - Drug dose omission [None]
  - Escherichia infection [None]
  - Bacteraemia [Recovered/Resolved with Sequelae]
  - Pyelonephritis [Recovered/Resolved with Sequelae]
  - Acute kidney injury [Recovered/Resolved with Sequelae]
  - Haemolysis [None]

NARRATIVE: CASE EVENT DATE: 20130922
